FAERS Safety Report 6459982-9 (Version None)
Quarter: 2009Q4

REPORT INFORMATION
  Report Type: 
  Country: None (occurrence: None)
  Receive Date: 20091129
  Receipt Date: 20091117
  Transmission Date: 20100525
  Serious: Yes (Hospitalization, Other)
  Sender: FDA-Public Use
  Company Number: PHEH2009US10975

PATIENT
  Sex: Female

DRUGS (5)
  1. EXJADE [Suspect]
     Indication: THALASSAEMIA
     Dosage: 750 MG, QD
     Route: 048
     Dates: start: 20091025
  2. EXJADE [Suspect]
     Indication: IRON OVERLOAD
  3. DESFERAL [Concomitant]
     Route: 042
  4. CHLOROTHIAZIDE [Concomitant]
     Indication: DIURETIC THERAPY
     Dosage: 50 MG, BID
     Route: 048
  5. SPIRONOLACTONE [Concomitant]
     Indication: DIURETIC THERAPY
     Dosage: 25 MG, TID
     Route: 048

REACTIONS (5)
  - ANXIETY [None]
  - CARDIAC DISORDER [None]
  - HYPERTENSION [None]
  - PAIN [None]
  - PALLIATIVE CARE [None]
